FAERS Safety Report 7753710-2 (Version None)
Quarter: 2011Q3

REPORT INFORMATION
  Report Type: 
  Country: None (occurrence: None)
  Receive Date: 20110915
  Receipt Date: 20110915
  Transmission Date: 20111222
  Serious: Yes (Other)
  Sender: FDA-Public Use
  Company Number: None

PATIENT
  Age: 47 Year
  Sex: Female
  Weight: 70.76 kg

DRUGS (2)
  1. CYMBALTA [Suspect]
     Indication: FIBROMYALGIA
     Dosage: ONE
     Route: 048
     Dates: start: 20110701, end: 20110916
  2. CYMBALTA [Concomitant]
     Indication: SPINAL OSTEOARTHRITIS
     Dosage: ONE
     Route: 048

REACTIONS (2)
  - HALO VISION [None]
  - VISUAL IMPAIRMENT [None]
